FAERS Safety Report 9458054 (Version 1)
Quarter: 2013Q3

REPORT INFORMATION
  Report Type: Spontaneous
  Country: JP (occurrence: None)
  Receive Date: 20130812
  Receipt Date: 20130812
  Transmission Date: 20140515
  Serious: Yes (Hospitalization, Other)
  Sender: FDA-Public Use
  Company Number: JP-ZYDUS-001961

PATIENT
  Age: 86 Year
  Sex: Female

DRUGS (2)
  1. DONEPEZIL [Suspect]
     Indication: DEMENTIA ALZHEIMER^S TYPE
  2. AMLODIPINE (AMLOIPINE) [Concomitant]

REACTIONS (6)
  - Torsade de pointes [None]
  - Syncope [None]
  - Atrial fibrillation [None]
  - Blood pressure decreased [None]
  - Fall [None]
  - Adams-Stokes syndrome [None]
